FAERS Safety Report 25765281 (Version 2)
Quarter: 2025Q3

REPORT INFORMATION
  Report Type: Spontaneous
  Country: EU (occurrence: EU)
  Receive Date: 20250905
  Receipt Date: 20250912
  Transmission Date: 20251020
  Serious: Yes (Hospitalization)
  Sender: RANBAXY
  Company Number: EU-AFSSAPS-DJ2025000877

PATIENT
  Age: 74 Year
  Sex: Male
  Weight: 85 kg

DRUGS (5)
  1. PANTOPRAZOLE [Suspect]
     Active Substance: PANTOPRAZOLE
     Indication: Prophylaxis
     Dosage: 40 MILLIGRAM, DAILY
     Route: 048
     Dates: start: 20250408, end: 20250426
  2. EZETIMIBE [Suspect]
     Active Substance: EZETIMIBE
     Indication: Prophylaxis
     Dosage: 10 MILLIGRAM, DAILY
     Route: 048
     Dates: start: 20250408, end: 20250426
  3. TICAGRELOR [Suspect]
     Active Substance: TICAGRELOR
     Indication: Myocardial infarction
     Route: 048
     Dates: start: 20250408, end: 20250426
  4. VERAPAMIL HYDROCHLORIDE [Suspect]
     Active Substance: VERAPAMIL HYDROCHLORIDE
     Indication: Arteriospasm coronary
     Dosage: 120 MILLIGRAM, DAILY, 1/2 TABLET IN THE MORNING
     Route: 048
     Dates: start: 20250413, end: 20250428
  5. NITROGLYCERIN [Suspect]
     Active Substance: NITROGLYCERIN
     Indication: Arteriospasm coronary
     Dosage: 15 MILLIGRAM, DAILY
     Route: 048
     Dates: start: 20250413, end: 20250428

REACTIONS (1)
  - Pruritus [Recovered/Resolved]

NARRATIVE: CASE EVENT DATE: 20250415
